FAERS Safety Report 8171943-0 (Version None)
Quarter: 2012Q1

REPORT INFORMATION
  Report Type: 
  Country: None (occurrence: None)
  Receive Date: 20120228
  Receipt Date: 20120217
  Transmission Date: 20120608
  Serious: Yes (Other)
  Sender: FDA-Public Use
  Company Number: AU-ROCHE-1042901

PATIENT
  Sex: Male

DRUGS (2)
  1. LUCENTIS [Suspect]
     Indication: AGE-RELATED MACULAR DEGENERATION
     Dosage: LEFT EYE
     Route: 050
     Dates: start: 20071201
  2. LUCENTIS [Suspect]
     Dosage: RIGHT EYE
     Route: 050
     Dates: start: 20080401

REACTIONS (2)
  - INTRAOCULAR PRESSURE INCREASED [None]
  - VISUAL FIELD DEFECT [None]
